FAERS Safety Report 22532251 (Version 1)
Quarter: 2023Q2

REPORT INFORMATION
  Report Type: Report from Study
  Country: GT (occurrence: GT)
  Receive Date: 20230607
  Receipt Date: 20230607
  Transmission Date: 20230722
  Serious: Yes (Other)
  Sender: FDA-Public Use
  Company Number: GT-BAYER-2023A050018

PATIENT
  Age: 64 Year
  Sex: Male

DRUGS (1)
  1. NEXAVAR [Suspect]
     Active Substance: SORAFENIB
     Indication: Hepatocellular carcinoma
     Dosage: 400 MG, BID
     Route: 048
     Dates: start: 20220201, end: 20230301

REACTIONS (5)
  - Hiatus hernia [Not Recovered/Not Resolved]
  - Umbilical hernia perforation [Recovered/Resolved]
  - Hernia pain [Not Recovered/Not Resolved]
  - Muscle rupture [None]
  - Drug ineffective [Not Recovered/Not Resolved]

NARRATIVE: CASE EVENT DATE: 20230301
